FAERS Safety Report 5433430-X (Version None)
Quarter: 2007Q3

REPORT INFORMATION
  Report Type: 
  Country: None (occurrence: None)
  Receive Date: 20070831
  Receipt Date: 20070730
  Transmission Date: 20080115
  Serious: No
  Sender: FDA-Public Use
  Company Number: A0665430A

PATIENT
  Age: 30 Year
  Sex: Female

DRUGS (2)
  1. ALLI [Suspect]
     Route: 065
     Dates: start: 20070709
  2. LASIX [Concomitant]
     Indication: DIURETIC THERAPY

REACTIONS (3)
  - JOINT SWELLING [None]
  - OEDEMA PERIPHERAL [None]
  - PHARMACEUTICAL PRODUCT COMPLAINT [None]
